FAERS Safety Report 17893517 (Version 1)
Quarter: 2020Q2

REPORT INFORMATION
  Report Type: Spontaneous
  Country: US (occurrence: US)
  Receive Date: 20200615
  Receipt Date: 20200615
  Transmission Date: 20200714
  Serious: Yes (Other)
  Sender: FDA-Public Use
  Company Number: US-CIPLA LTD.-2020US03968

PATIENT

DRUGS (37)
  1. TOPIRAMATE. [Suspect]
     Active Substance: TOPIRAMATE
     Indication: PARTIAL SEIZURES
  2. LEVETIRACETAM. [Suspect]
     Active Substance: LEVETIRACETAM
     Indication: GENERALISED TONIC-CLONIC SEIZURE
  3. FOSPHENYTOIN [Suspect]
     Active Substance: FOSPHENYTOIN
     Indication: PARTIAL SEIZURES
  4. LACOSAMIDE. [Suspect]
     Active Substance: LACOSAMIDE
     Indication: HEMIPARESIS
     Dosage: UNK
     Route: 065
  5. LACOSAMIDE. [Suspect]
     Active Substance: LACOSAMIDE
     Indication: PARTIAL SEIZURES
  6. PERAMPANEL [Suspect]
     Active Substance: PERAMPANEL
     Indication: GENERALISED TONIC-CLONIC SEIZURE
  7. PENTOBARBITAL. [Suspect]
     Active Substance: PENTOBARBITAL
     Indication: GENERALISED TONIC-CLONIC SEIZURE
  8. MAGNESIUM [Suspect]
     Active Substance: MAGNESIUM
     Indication: PARTIAL SEIZURES
  9. PENTOBARBITAL. [Suspect]
     Active Substance: PENTOBARBITAL
     Indication: HEMIPARESIS
     Dosage: UNK
     Route: 065
  10. MAGNESIUM [Suspect]
     Active Substance: MAGNESIUM
     Indication: GENERALISED TONIC-CLONIC SEIZURE
  11. VALPROIC ACID. [Suspect]
     Active Substance: VALPROIC ACID
     Indication: HEMIPARESIS
     Dosage: UNK
     Route: 065
  12. TOPIRAMATE. [Suspect]
     Active Substance: TOPIRAMATE
     Indication: GENERALISED TONIC-CLONIC SEIZURE
  13. MIDAZOLAM. [Suspect]
     Active Substance: MIDAZOLAM
     Indication: GENERALISED TONIC-CLONIC SEIZURE
  14. VALPROIC ACID. [Suspect]
     Active Substance: VALPROIC ACID
     Indication: GENERALISED TONIC-CLONIC SEIZURE
  15. KETAMINE [Suspect]
     Active Substance: KETAMINE
     Indication: PARTIAL SEIZURES
  16. TOPIRAMATE. [Suspect]
     Active Substance: TOPIRAMATE
     Indication: HEMIPARESIS
     Dosage: UNK
     Route: 065
  17. MIDAZOLAM. [Suspect]
     Active Substance: MIDAZOLAM
     Indication: HEMIPARESIS
     Dosage: UNK
     Route: 065
  18. FOSPHENYTOIN [Suspect]
     Active Substance: FOSPHENYTOIN
     Indication: GENERALISED TONIC-CLONIC SEIZURE
  19. CLOBAZAM. [Suspect]
     Active Substance: CLOBAZAM
     Indication: HEMIPARESIS
     Dosage: UNK
     Route: 065
  20. MIDAZOLAM. [Suspect]
     Active Substance: MIDAZOLAM
     Indication: PARTIAL SEIZURES
  21. PERAMPANEL [Suspect]
     Active Substance: PERAMPANEL
     Indication: PARTIAL SEIZURES
  22. PROPOFOL. [Suspect]
     Active Substance: PROPOFOL
     Indication: HEMIPARESIS
     Dosage: UNK
     Route: 065
  23. PROPOFOL. [Suspect]
     Active Substance: PROPOFOL
     Indication: PARTIAL SEIZURES
  24. PROPOFOL. [Suspect]
     Active Substance: PROPOFOL
     Indication: GENERALISED TONIC-CLONIC SEIZURE
  25. LEVETIRACETAM. [Suspect]
     Active Substance: LEVETIRACETAM
     Indication: PARTIAL SEIZURES
  26. LACOSAMIDE. [Suspect]
     Active Substance: LACOSAMIDE
     Indication: GENERALISED TONIC-CLONIC SEIZURE
  27. MAGNESIUM [Suspect]
     Active Substance: MAGNESIUM
     Indication: HEMIPARESIS
     Dosage: UNK
     Route: 065
  28. CARNITINE [Suspect]
     Active Substance: CARNITINE
     Indication: PRODUCT USED FOR UNKNOWN INDICATION
     Dosage: UNK
     Route: 065
  29. KETAMINE [Suspect]
     Active Substance: KETAMINE
     Indication: GENERALISED TONIC-CLONIC SEIZURE
  30. LEVETIRACETAM. [Suspect]
     Active Substance: LEVETIRACETAM
     Indication: HEMIPARESIS
     Dosage: UNK
     Route: 065
  31. FOSPHENYTOIN [Suspect]
     Active Substance: FOSPHENYTOIN
     Indication: HEMIPARESIS
     Dosage: UNK
     Route: 065
  32. PERAMPANEL [Suspect]
     Active Substance: PERAMPANEL
     Indication: HEMIPARESIS
     Dosage: UNK
     Route: 065
  33. CLOBAZAM. [Suspect]
     Active Substance: CLOBAZAM
     Indication: PARTIAL SEIZURES
  34. CLOBAZAM. [Suspect]
     Active Substance: CLOBAZAM
     Indication: GENERALISED TONIC-CLONIC SEIZURE
  35. PENTOBARBITAL. [Suspect]
     Active Substance: PENTOBARBITAL
     Indication: PARTIAL SEIZURES
  36. VALPROIC ACID. [Suspect]
     Active Substance: VALPROIC ACID
     Indication: PARTIAL SEIZURES
  37. KETAMINE [Suspect]
     Active Substance: KETAMINE
     Indication: HEMIPARESIS
     Dosage: UNK
     Route: 065

REACTIONS (2)
  - Exposure during pregnancy [Unknown]
  - Treatment failure [Unknown]
